FAERS Safety Report 8609800-5 (Version None)
Quarter: 2012Q3

REPORT INFORMATION
  Report Type: 
  Country: None (occurrence: None)
  Receive Date: 20120821
  Receipt Date: 20120813
  Transmission Date: 20120928
  Serious: Yes (Other)
  Sender: FDA-Public Use
  Company Number: CHPA2012US018084

PATIENT
  Age: 80 Year
  Sex: Female

DRUGS (2)
  1. CHEMOTHERAPEUTICS [Suspect]
     Indication: LUNG NEOPLASM MALIGNANT
     Dosage: UNK, ONCE A WEEK
     Route: 065
  2. KERI SHEA BUTTER [Suspect]
     Indication: DRY SKIN
     Dosage: UNK, DAILY
     Route: 061
     Dates: end: 20120601

REACTIONS (2)
  - LUNG NEOPLASM MALIGNANT [None]
  - DECREASED APPETITE [None]
